FAERS Safety Report 5412807-2 (Version None)
Quarter: 2007Q3

REPORT INFORMATION
  Report Type: 
  Country: None (occurrence: None)
  Receive Date: 20070813
  Receipt Date: 20070731
  Transmission Date: 20080115
  Serious: Yes (Other)
  Sender: FDA-Public Use
  Company Number: GB-ELI_LILLY_AND_COMPANY-GB200708000299

PATIENT
  Age: 28 Year
  Sex: Female
  Weight: 85.4 kg

DRUGS (2)
  1. FLUOXETINE [Suspect]
     Dates: start: 20070309
  2. XENICAL [Concomitant]
     Indication: OBESITY
     Dosage: 120 MG, 3/D
     Route: 048
     Dates: start: 20070209, end: 20070316

REACTIONS (2)
  - ABORTION SPONTANEOUS [None]
  - DRUG EXPOSURE DURING PREGNANCY [None]
